FAERS Safety Report 6935173-X (Version None)
Quarter: 2010Q3

REPORT INFORMATION
  Report Type: 
  Country: None (occurrence: None)
  Receive Date: 20100822
  Receipt Date: 20100817
  Transmission Date: 20110219
  Serious: Yes (Death)
  Sender: FDA-Public Use
  Company Number: PHHY2010MX54886

PATIENT
  Age: 83 Year
  Sex: Male

DRUGS (1)
  1. ZOMETA [Suspect]
     Indication: HYPERCALCAEMIA
     Dosage: 4 MG/ 5 ML, QMO

REACTIONS (3)
  - MALIGNANT NEOPLASM PROGRESSION [None]
  - METASTASES TO CENTRAL NERVOUS SYSTEM [None]
  - PLATELET COUNT DECREASED [None]
